FAERS Safety Report 11210692 (Version 1)
Quarter: 2015Q2

REPORT INFORMATION
  Report Type: Spontaneous
  Country: US (occurrence: US)
  Receive Date: 20150622
  Receipt Date: 20150622
  Transmission Date: 20150821
  Serious: Yes (Hospitalization)
  Sender: FDA-Public Use
  Company Number: US-SA-2015SA047499

PATIENT
  Sex: Male

DRUGS (1)
  1. HECTOROL [Suspect]
     Active Substance: DOXERCALCIFEROL
     Dosage: MONDAY, WEDNESDAY AND FRIDAY
     Route: 065

REACTIONS (1)
  - Dyspnoea [Not Recovered/Not Resolved]
